FAERS Safety Report 6529205-0 (Version None)
Quarter: 2010Q1

REPORT INFORMATION
  Report Type: 
  Country: None (occurrence: None)
  Receive Date: 20100107
  Receipt Date: 20091228
  Transmission Date: 20100710
  Serious: Yes (Death, Hospitalization)
  Sender: FDA-Public Use
  Company Number: DE-ELI_LILLY_AND_COMPANY-DE200911006447

PATIENT
  Sex: Male

DRUGS (14)
  1. FORTEO [Suspect]
     Indication: OSTEOPOROSIS
     Dosage: 20 UG, DAILY (1/D)
     Route: 065
     Dates: start: 20090701
  2. SANDIMMUNE [Concomitant]
     Dosage: UNK, UNKNOWN
     Route: 065
  3. SPIRONOLACTONE [Concomitant]
     Dosage: UNK, UNKNOWN
     Route: 065
  4. MAGNESIUM [Concomitant]
     Dosage: UNK, UNKNOWN
     Route: 065
  5. SILDENAFIL [Concomitant]
     Dosage: UNK, UNKNOWN
     Route: 065
  6. PANTORC [Concomitant]
     Dosage: UNK, UNKNOWN
     Route: 065
  7. HEPA-MERZ [Concomitant]
     Dosage: UNK, UNKNOWN
     Route: 065
  8. OSSOFORTIN FORTE [Concomitant]
     Dosage: UNK, UNKNOWN
     Route: 065
  9. KONAKION [Concomitant]
     Dosage: UNK, UNKNOWN
     Route: 065
  10. TRUSOPT [Concomitant]
     Dosage: UNK, UNKNOWN
     Route: 065
  11. VITAMIN B COMPLEX CAP [Concomitant]
     Dosage: UNK, UNKNOWN
     Route: 065
  12. ACTRAPID                           /00030501/ [Concomitant]
     Dosage: UNK, UNKNOWN
     Route: 065
  13. PROTAPHANE [Concomitant]
     Dosage: UNK, UNKNOWN
     Route: 065
  14. JODID [Concomitant]
     Dosage: UNK, UNKNOWN
     Route: 065

REACTIONS (3)
  - FALL [None]
  - PNEUMONIA [None]
  - SEPSIS [None]
